FAERS Safety Report 5423550-8 (Version None)
Quarter: 2007Q3

REPORT INFORMATION
  Report Type: 
  Country: None (occurrence: None)
  Receive Date: 20070823
  Receipt Date: 20070213
  Transmission Date: 20080115
  Serious: Yes (Death)
  Sender: FDA-Public Use
  Company Number: US-ASTRAZENECA-2007UW02880

PATIENT
  Age: 56 Year
  Sex: Male
  Weight: 54.4 kg

DRUGS (1)
  1. IRESSA [Suspect]
     Indication: THROAT CANCER
     Route: 048
     Dates: start: 20020101

REACTIONS (1)
  - DISEASE PROGRESSION [None]
